FAERS Safety Report 6747049-1 (Version None)
Quarter: 2010Q2

REPORT INFORMATION
  Report Type: 
  Country: None (occurrence: None)
  Receive Date: 20100528
  Receipt Date: 20100518
  Transmission Date: 20101027
  Serious: Yes (Death)
  Sender: FDA-Public Use
  Company Number: DE-ROCHE-705392

PATIENT
  Age: 62 Year
  Sex: Female

DRUGS (1)
  1. AVASTIN [Suspect]
     Dosage: GIVEN TWICE
     Route: 065
     Dates: start: 20100225, end: 20100401

REACTIONS (1)
  - GUILLAIN-BARRE SYNDROME [None]
